FAERS Safety Report 14972876 (Version 1)
Quarter: 2018Q2

REPORT INFORMATION
  Report Type: Spontaneous
  Country: BR (occurrence: BR)
  Receive Date: 20180605
  Receipt Date: 20180605
  Transmission Date: 20180711
  Serious: Yes (Hospitalization)
  Sender: FDA-Public Use
  Company Number: BR-B.I. PHARMACEUTICALS,INC./RIDGEFIELD-2018-BI-029229

PATIENT
  Sex: Male
  Weight: 78 kg

DRUGS (3)
  1. ATENSINA [Suspect]
     Active Substance: CLONIDINE
     Indication: HYPERTENSION
     Route: 048
     Dates: start: 2002
  2. ATENSINA [Suspect]
     Active Substance: CLONIDINE
     Route: 048
     Dates: start: 201805
  3. NIFEDIPINO [Concomitant]
     Indication: HYPERTENSION
     Route: 048
     Dates: start: 2002

REACTIONS (2)
  - Road traffic accident [Recovered/Resolved]
  - Humerus fracture [Recovered/Resolved]

NARRATIVE: CASE EVENT DATE: 2006
